FAERS Safety Report 9513318 (Version 3)
Quarter: 2014Q1

REPORT INFORMATION
  Report Type: Report from Study
  Country: US (occurrence: US)
  Receive Date: 20130910
  Receipt Date: 20140107
  Transmission Date: 20141002
  Serious: Yes (Other)
  Sender: FDA-Public Use
  Company Number: US-TEVA-431056USA

PATIENT
  Sex: Female

DRUGS (3)
  1. CLARAVIS [Suspect]
     Route: 048
     Dates: start: 20130617, end: 20130701
  2. ANTIBIOTICS [Suspect]
     Indication: RESPIRATORY TRACT INFECTION
  3. ORAL CONTRACEPTIVE NOS [Concomitant]

REACTIONS (1)
  - Unintended pregnancy [Unknown]
